FAERS Safety Report 21684218 (Version 1)
Quarter: 2022Q4

REPORT INFORMATION
  Report Type: Spontaneous
  Country: US (occurrence: US)
  Receive Date: 20221205
  Receipt Date: 20221205
  Transmission Date: 20230112
  Serious: No
  Sender: FDA-Public Use
  Company Number: US-PERRIGO-22US006635

PATIENT
  Age: 63 Year
  Sex: Female
  Weight: 58.957 kg

DRUGS (2)
  1. GUAIFENESIN [Suspect]
     Active Substance: GUAIFENESIN
     Indication: Respiratory tract congestion
     Dosage: 1200 MG, QD
     Route: 048
     Dates: start: 20220424, end: 20220425
  2. GUAIFENESIN [Suspect]
     Active Substance: GUAIFENESIN
     Dosage: 1200 MG, BID
     Route: 048
     Dates: start: 20220426, end: 20220502

REACTIONS (2)
  - Drug ineffective [Unknown]
  - Inappropriate schedule of product administration [Recovered/Resolved]

NARRATIVE: CASE EVENT DATE: 20220424
